FAERS Safety Report 8394340-1 (Version None)
Quarter: 2012Q2

REPORT INFORMATION
  Report Type: 
  Country: None (occurrence: None)
  Receive Date: 20120530
  Receipt Date: 20120521
  Transmission Date: 20120825
  Serious: Yes (Hospitalization, Other)
  Sender: FDA-Public Use
  Company Number: JP-JNJFOC-20111105770

PATIENT
  Sex: Female
  Weight: 41 kg

DRUGS (23)
  1. LENDORMIN [Concomitant]
     Indication: PAIN
     Route: 048
     Dates: start: 20101117, end: 20110224
  2. GABAPENTIN [Concomitant]
     Indication: PAIN
     Route: 048
     Dates: start: 20101202
  3. MOTILIUM [Concomitant]
     Indication: VOMITING
     Route: 048
     Dates: start: 20101128, end: 20101216
  4. CODEINE PHOSPHATE [Concomitant]
     Route: 048
     Dates: start: 20101204
  5. CODEINE PHOSPHATE [Concomitant]
     Route: 048
     Dates: start: 20101127
  6. CLINDAMYCIN PHOSPHATE [Concomitant]
     Route: 065
     Dates: start: 20111024, end: 20111028
  7. CODEINE PHOSPHATE [Concomitant]
     Indication: PAIN
     Route: 048
     Dates: start: 20101125, end: 20101127
  8. CODEINE PHOSPHATE [Concomitant]
     Route: 048
     Dates: start: 20101111
  9. CODEINE PHOSPHATE [Concomitant]
     Route: 048
     Dates: start: 20101225
  10. LOXONIN [Concomitant]
     Indication: PAIN
     Route: 062
     Dates: start: 20100830
  11. ALENDRONATE SODIUM [Concomitant]
     Indication: PAIN
     Route: 065
     Dates: start: 20101115, end: 20110123
  12. CODEINE PHOSPHATE [Concomitant]
     Route: 048
     Dates: start: 20101218
  13. CODEINE PHOSPHATE [Concomitant]
     Route: 048
     Dates: start: 20101211
  14. CODEINE PHOSPHATE [Concomitant]
     Route: 048
     Dates: start: 20101121
  15. AMPICILLIN SODIUM/SULBACTAM SODIUM [Concomitant]
     Indication: PAIN
     Route: 065
     Dates: start: 20110914, end: 20110915
  16. PIPERACILLIN/TAZOBACTAM [Concomitant]
     Route: 065
     Dates: start: 20111008, end: 20111023
  17. LEVOFLOXACIN HYDRATE [Concomitant]
     Route: 065
     Dates: start: 20111029, end: 20111112
  18. MOTILIUM [Concomitant]
     Indication: NAUSEA
     Route: 048
     Dates: start: 20101128, end: 20101216
  19. CODEINE PHOSPHATE [Concomitant]
     Route: 048
     Dates: start: 20111125
  20. PAZUFLOXACIN [Concomitant]
     Route: 065
     Dates: start: 20111003, end: 20111007
  21. DORIPENEM HYDRATE [Concomitant]
     Route: 065
     Dates: start: 20110916, end: 20111002
  22. FENTANYL-100 [Suspect]
     Indication: PAIN
     Route: 062
     Dates: start: 20101127
  23. MAGMITT [Concomitant]
     Route: 048
     Dates: start: 20101125, end: 20101216

REACTIONS (6)
  - ALTERED STATE OF CONSCIOUSNESS [None]
  - HYPERTHERMIA [None]
  - VOMITING [None]
  - NAUSEA [None]
  - SEPSIS [None]
  - WOUND INFECTION [None]
